FAERS Safety Report 7245421-7 (Version None)
Quarter: 2011Q1

REPORT INFORMATION
  Report Type: 
  Country: None (occurrence: None)
  Receive Date: 20110126
  Receipt Date: 20070425
  Transmission Date: 20110831
  Serious: Yes (Death, Other)
  Sender: FDA-Public Use
  Company Number: VE-PFIZER INC-2011018151

PATIENT
  Age: 76 Year
  Sex: Female

DRUGS (1)
  1. ZOLOFT [Suspect]
     Indication: DEPRESSION
     Dosage: 50 MG, 2X/DAY
     Route: 048
     Dates: start: 20070101, end: 20080101

REACTIONS (2)
  - PANCREATITIS ACUTE [None]
  - POST PROCEDURAL COMPLICATION [None]
